FAERS Safety Report 8231808 (Version 2)
Quarter: 2012Q4

REPORT INFORMATION
  Report Type: 
  Country: US (occurrence: US)
  Receive Date: 20111106
  Receipt Date: 20121107
  Transmission Date: 20130627
  Serious: No
  Sender: FDA-Public Use
  Company Number: US-AMGEN-USASP2011046342

PATIENT
  Age: 37 Year
  Sex: Female
  Weight: 107.94 kg

DRUGS (4)
  1. ENBREL [Suspect]
     Indication: RHEUMATOID ARTHRITIS
     Dosage: 50 mg, qwk
     Route: 058
     Dates: start: 20110726, end: 20110812
  2. ENBREL [Suspect]
     Dosage: 25 UNK, UNK
     Route: 058
  3. HYDROCHLOROTHIAZIDE [Concomitant]
  4. PROVERA [Concomitant]

REACTIONS (2)
  - Tremor [Recovered/Resolved]
  - Hyperhidrosis [Recovered/Resolved]
